FAERS Safety Report 5121544-3 (Version None)
Quarter: 2006Q4

REPORT INFORMATION
  Report Type: 
  Country: None (occurrence: None)
  Receive Date: 20061003
  Receipt Date: 20060921
  Transmission Date: 20070319
  Serious: Yes (Other)
  Sender: FDA-Public Use
  Company Number: 2006113799

PATIENT

DRUGS (1)
  1. CAMPTOSAR [Suspect]
     Dosage: (180 MG/M*2)

REACTIONS (1)
  - PNEUMONITIS [None]
